FAERS Safety Report 9515587 (Version 2)
Quarter: 2013Q4

REPORT INFORMATION
  Report Type: Spontaneous
  Country: FR (occurrence: FR)
  Receive Date: 20130911
  Receipt Date: 20131122
  Transmission Date: 20140711
  Serious: Yes (Other)
  Sender: FDA-Public Use
  Company Number: FR-ASTELLAS-2013EU007701

PATIENT
  Age: 18 Day
  Sex: Female
  Weight: .71 kg

DRUGS (14)
  1. MYCAMINE [Suspect]
     Indication: CANDIDA SEPSIS
     Dosage: 5 MG/KG, UID/QD
     Route: 042
     Dates: start: 20130613, end: 20130805
  2. MYCAMINE [Suspect]
     Indication: PERITONITIS
  3. DOPAMINE [Concomitant]
     Indication: OLIGURIA
     Dosage: 5 UNK, CONTINUOUS
     Route: 042
     Dates: start: 20130604, end: 20130609
  4. PANTOPRAZOLE [Concomitant]
     Dosage: UNK
     Route: 065
  5. IBUPROFENE [Concomitant]
     Indication: PATENT DUCTUS ARTERIOSUS
     Dosage: 10 MG/KG, UNKNOWN/D
     Route: 042
     Dates: start: 20130605, end: 20130607
  6. IBUPROFENE [Concomitant]
     Dosage: 5 MG/KG, UNKNOWN/D
     Route: 042
     Dates: start: 20130605, end: 20130607
  7. INSULIN [Concomitant]
     Indication: HYPERGLYCAEMIA
     Dosage: 0.02 UNK, UNKNOWN/D
     Route: 042
     Dates: start: 20130609, end: 20130612
  8. PARACETAMOL [Concomitant]
     Dosage: UNK
     Route: 065
  9. VANCOMYCIN [Concomitant]
     Indication: STAPHYLOCOCCAL INFECTION
     Dosage: 30 MG/KG, CONTINUOUS
     Route: 042
     Dates: start: 20130610, end: 20130723
  10. GENTAMICIN [Concomitant]
     Dosage: UNK
     Route: 065
  11. SOLUTIONS FOR PARENTERAL NUTRITION [Concomitant]
     Dosage: UNK
     Route: 065
  12. MERONEM [Concomitant]
     Indication: STAPHYLOCOCCAL INFECTION
     Dosage: 20 MG/KG, Q12 HOURS
     Route: 042
     Dates: start: 20130610, end: 20130723
  13. RETROVIR [Concomitant]
     Indication: PROPHYLAXIS AGAINST HIV INFECTION
     Dosage: 1.5 MG/KG, BID
     Route: 042
     Dates: start: 20130603, end: 20130701
  14. MORPHINE [Concomitant]
     Dosage: 20 UNK, CONTINUOUS
     Route: 042
     Dates: start: 20130613, end: 20130703

REACTIONS (2)
  - Overdose [Unknown]
  - Hepatic calcification [Recovering/Resolving]
